FAERS Safety Report 15414954 (Version 2)
Quarter: 2018Q3

REPORT INFORMATION
  Report Type: Spontaneous
  Country: DE (occurrence: DE)
  Receive Date: 20180921
  Receipt Date: 20180927
  Transmission Date: 20181010
  Serious: Yes (Death, Life-Threatening)
  Sender: FDA-Public Use
  Company Number: PHHY2018DE104289

PATIENT
  Age: 86 Year
  Sex: Female

DRUGS (1)
  1. ALLOPURINOL. [Suspect]
     Active Substance: ALLOPURINOL
     Indication: HYPERURICAEMIA
     Dosage: 100 MG, UNK
     Route: 048
     Dates: start: 201806, end: 201808

REACTIONS (3)
  - Stevens-Johnson syndrome [Fatal]
  - Ulcerative keratitis [Fatal]
  - Mucosal inflammation [Fatal]

NARRATIVE: CASE EVENT DATE: 20180731
